FAERS Safety Report 7424358-4 (Version None)
Quarter: 2011Q2

REPORT INFORMATION
  Report Type: 
  Country: None (occurrence: None)
  Receive Date: 20110419
  Receipt Date: 20101222
  Transmission Date: 20111010
  Serious: No
  Sender: FDA-Public Use
  Company Number: US-BAYER-2011-026871

PATIENT
  Sex: Female

DRUGS (2)
  1. FINACEA [Suspect]
     Indication: ROSACEA
  2. FINACEA [Suspect]

REACTIONS (1)
  - ROSACEA [None]
